FAERS Safety Report 7949218-1 (Version None)
Quarter: 2011Q4

REPORT INFORMATION
  Report Type: 
  Country: None (occurrence: None)
  Receive Date: 20111130
  Receipt Date: 20111122
  Transmission Date: 20120403
  Serious: Yes (Other)
  Sender: FDA-Public Use
  Company Number: JP-ALLERGAN-1115428US

PATIENT
  Sex: Female

DRUGS (1)
  1. BOTOX [Suspect]
     Indication: FACIAL SPASM
     Dosage: UNK
     Route: 031

REACTIONS (3)
  - PUNCTATE KERATITIS [None]
  - ACCIDENTAL EXPOSURE [None]
  - LAGOPHTHALMOS [None]
